FAERS Safety Report 22358518 (Version 1)
Quarter: 2023Q2

REPORT INFORMATION
  Report Type: Spontaneous
  Country: US (occurrence: US)
  Receive Date: 20230524
  Receipt Date: 20230524
  Transmission Date: 20230722
  Serious: No
  Sender: FDA-Public Use
  Company Number: US-GSKCCFUS-Case-01703260_AE-96138

PATIENT
  Age: 77 Year
  Sex: Female

DRUGS (1)
  1. ARNUITY ELLIPTA [Suspect]
     Active Substance: FLUTICASONE FUROATE
     Indication: Product used for unknown indication
     Dosage: 200 UG, QD
     Route: 055

REACTIONS (7)
  - Abdominal discomfort [Unknown]
  - Dysphonia [Unknown]
  - Dizziness [Unknown]
  - Cough [Unknown]
  - Product prescribing error [Unknown]
  - Product dose omission issue [Unknown]
  - Inappropriate schedule of product administration [Unknown]
